FAERS Safety Report 5800668-9 (Version None)
Quarter: 2008Q3

REPORT INFORMATION
  Report Type: 
  Country: None (occurrence: None)
  Receive Date: 20080703
  Receipt Date: 20080627
  Transmission Date: 20090109
  Serious: Yes (Life-Threatening, Hospitalization)
  Sender: FDA-Public Use
  Company Number: US-GENENTECH-263659

PATIENT
  Sex: Male
  Weight: 75.2 kg

DRUGS (4)
  1. RITUXAN [Suspect]
     Indication: HODGKIN'S DISEASE
  2. ADRIAMYCIN PFS [Suspect]
     Indication: HODGKIN'S DISEASE
     Dosage: 46 MG, UNK
     Route: 042
  3. VINBLASTINE SULFATE [Suspect]
     Indication: HODGKIN'S DISEASE
     Dosage: 11 MG, UNK
     Route: 042
  4. DACARBAZINE [Suspect]
     Indication: HODGKIN'S DISEASE
     Dosage: 690 MG, UNK
     Route: 042

REACTIONS (1)
  - PLEURAL EFFUSION [None]
